FAERS Safety Report 4910083-8 (Version None)
Quarter: 2006Q1

REPORT INFORMATION
  Report Type: 
  Country: None (occurrence: None)
  Receive Date: 20060209
  Receipt Date: 20060120
  Transmission Date: 20060701
  Serious: Yes (Hospitalization)
  Sender: FDA-Public Use
  Company Number: US200601003772

PATIENT
  Age: 78 Year
  Sex: Female

DRUGS (2)
  1. FORTEO [Suspect]
     Indication: OSTEOPOROSIS
     Dosage: 20 UG/DAY, UNK, SUBCUTANEOUS
     Route: 058
     Dates: start: 20050101
  2. FORTEO [Concomitant]

REACTIONS (3)
  - COLONIC POLYP [None]
  - GASTROINTESTINAL DISORDER [None]
  - MALAISE [None]
